FAERS Safety Report 11121149 (Version 1)
Quarter: 2015Q2

REPORT INFORMATION
  Report Type: Spontaneous
  Country: EG (occurrence: EG)
  Receive Date: 20150519
  Receipt Date: 20150519
  Transmission Date: 20150821
  Serious: Yes (Death, Hospitalization)
  Sender: FDA-Public Use
  Company Number: EG-NOVOPROD-448854

PATIENT
  Age: 60 Year
  Sex: Female
  Weight: 85 kg

DRUGS (1)
  1. NOVOMIX 30 FLEXPEN [Suspect]
     Active Substance: INSULIN ASPART
     Indication: DIABETES MELLITUS
     Dosage: 32 IU, QD (16 IU AT MORNING AND 16 IU AT NIGHT)
     Route: 058
     Dates: start: 201410, end: 20141115

REACTIONS (1)
  - Coma hepatic [Fatal]
